FAERS Safety Report 18722999 (Version 1)
Quarter: 2021Q1

REPORT INFORMATION
  Report Type: Other
  Country: CN (occurrence: CN)
  Receive Date: 20210111
  Receipt Date: 20210111
  Transmission Date: 20210419
  Serious: Yes (Other)
  Sender: FDA-Public Use
  Company Number: CN-ROCHE-2744158

PATIENT

DRUGS (13)
  1. PLATINUM [Suspect]
     Active Substance: PLATINUM
     Indication: BREAST CANCER
     Route: 065
  2. VINORELBINE [Suspect]
     Active Substance: VINORELBINE TARTRATE
     Indication: BREAST CANCER
     Route: 065
  3. CYCLOPHOSPHAMIDE. [Suspect]
     Active Substance: CYCLOPHOSPHAMIDE
     Indication: BREAST CANCER
     Route: 065
  4. CYCLOPHOSPHAMIDE;EPIRUBICIN HYDROCHLORIDE;FLUOROURACIL [Suspect]
     Active Substance: CYCLOPHOSPHAMIDE\EPIRUBICIN HYDROCHLORIDE\FLUOROURACIL
     Indication: BREAST CANCER
     Route: 065
  5. DOCETAXEL. [Suspect]
     Active Substance: DOCETAXEL
     Indication: BREAST CANCER
     Route: 065
  6. VINORELBINE [Suspect]
     Active Substance: VINORELBINE TARTRATE
     Indication: BREAST CANCER
     Route: 065
  7. CYCLOPHOSPHAMIDE;DOXORUBICIN [Suspect]
     Active Substance: CYCLOPHOSPHAMIDE\DOXORUBICIN
     Indication: BREAST CANCER
     Route: 065
  8. CAPECITABINE. [Suspect]
     Active Substance: CAPECITABINE
     Indication: BREAST CANCER
     Route: 048
  9. DOXORUBICIN [Suspect]
     Active Substance: DOXORUBICIN
     Indication: BREAST CANCER
     Route: 065
  10. LIPOSOMAL DOXORUBICIN [Suspect]
     Active Substance: DOXORUBICIN HYDROCHLORIDE
     Indication: BREAST CANCER
     Route: 065
  11. PACLITAXEL. [Suspect]
     Active Substance: PACLITAXEL
     Indication: BREAST CANCER
     Route: 065
  12. GEMCITABINE. [Suspect]
     Active Substance: GEMCITABINE
     Indication: BREAST CANCER
     Route: 065
  13. CYCLOPHOSPHAMIDE;FLUOROURACIL;METHOTREXATE [Suspect]
     Active Substance: CYCLOPHOSPHAMIDE\FLUOROURACIL\METHOTREXATE
     Indication: BREAST CANCER
     Route: 065

REACTIONS (9)
  - Leukopenia [Unknown]
  - Nausea [Unknown]
  - Anaemia [Unknown]
  - Vomiting [Unknown]
  - Alopecia [Unknown]
  - Thrombocytopenia [Unknown]
  - Nephropathy toxic [Unknown]
  - Neutropenia [Unknown]
  - Neuropathy peripheral [Unknown]
